FAERS Safety Report 6814566-5 (Version None)
Quarter: 2010Q3

REPORT INFORMATION
  Report Type: 
  Country: None (occurrence: None)
  Receive Date: 20100702
  Receipt Date: 20100622
  Transmission Date: 20110219
  Serious: Yes (Other)
  Sender: FDA-Public Use
  Company Number: FR-JNJFOC-20100407225

PATIENT
  Age: 51 Year
  Sex: Female

DRUGS (9)
  1. REMICADE [Suspect]
     Indication: PSORIASIS
     Route: 042
  2. REMICADE [Suspect]
     Dosage: 5TH INFUSION
     Route: 042
  3. COTAREG [Suspect]
     Indication: PRODUCT USED FOR UNKNOWN INDICATION
  4. PANTOPRAZOL [Concomitant]
  5. DIAMICRON [Concomitant]
  6. APSOR [Concomitant]
  7. COMPETACT [Concomitant]
  8. DOLIPRANE [Concomitant]
  9. DOVOBET [Concomitant]

REACTIONS (1)
  - CUTANEOUS LUPUS ERYTHEMATOSUS [None]
